FAERS Safety Report 8986240 (Version 1)
Quarter: 2012Q4

REPORT INFORMATION
  Report Type: Spontaneous
  Country: FR (occurrence: None)
  Receive Date: 20121217
  Receipt Date: 20121217
  Transmission Date: 20130627
  Serious: Yes (Other)
  Sender: FDA-Public Use
  Company Number: 7180331

PATIENT
  Age: 34 Year
  Sex: Female

DRUGS (3)
  1. LEVOTHYROX [Suspect]
     Indication: HYPERTHYROIDISM
     Dosage: 1 DF (1 DF, 1 in 1 D) Oral
  2. IMETH [Suspect]
     Route: 048
     Dates: end: 2009
  3. STELARA [Suspect]
     Dosage: (1 in 3 M)

REACTIONS (4)
  - Abortion spontaneous [None]
  - Exposure during pregnancy [None]
  - Foetal death [None]
  - Abortion induced [None]
